FAERS Safety Report 24588161 (Version 2)
Quarter: 2024Q4

REPORT INFORMATION
  Report Type: Report from Study
  Country: US (occurrence: US)
  Receive Date: 20241107
  Receipt Date: 20241120
  Transmission Date: 20250115
  Serious: Yes (Hospitalization)
  Sender: ABBVIE
  Company Number: US-ABBVIE-5950124

PATIENT
  Age: 50 Year
  Sex: Female

DRUGS (3)
  1. VENCLEXTA [Interacting]
     Active Substance: VENETOCLAX
     Indication: Chronic lymphocytic leukaemia
     Dosage: LAST ADMIN DATE: 2024
     Route: 048
     Dates: start: 20240905
  2. VENCLEXTA [Interacting]
     Active Substance: VENETOCLAX
     Indication: Chronic lymphocytic leukaemia
     Dosage: STOP DATE 2024
     Route: 048
     Dates: start: 202408
  3. GAZYVA [Interacting]
     Active Substance: OBINUTUZUMAB
     Indication: Product used for unknown indication
     Route: 065

REACTIONS (9)
  - Drug interaction [Unknown]
  - Diverticulitis [Unknown]
  - Abdominal discomfort [Unknown]
  - Enzyme level decreased [Unknown]
  - Drug hypersensitivity [Unknown]
  - Fatigue [Unknown]
  - Hepatic enzyme increased [Unknown]
  - Bronchospasm [Unknown]
  - Peripheral swelling [Unknown]

NARRATIVE: CASE EVENT DATE: 20240101
